FAERS Safety Report 17847452 (Version 1)
Quarter: 2020Q2

REPORT INFORMATION
  Report Type: Spontaneous
  Country: IT (occurrence: IT)
  Receive Date: 20200601
  Receipt Date: 20200601
  Transmission Date: 20200714
  Serious: Yes (Other)
  Sender: FDA-Public Use
  Company Number: IT-MYLANLABS-2020M1052661

PATIENT
  Age: 67 Year
  Sex: Female

DRUGS (8)
  1. FLUDARABINE [Suspect]
     Active Substance: FLUDARABINE PHOSPHATE
     Indication: ALLOGENIC STEM CELL TRANSPLANTATION
     Dosage: 30 MG/M2
     Dates: start: 201806, end: 201806
  2. RITUXIMAB. [Suspect]
     Active Substance: RITUXIMAB
     Indication: ANTIVIRAL PROPHYLAXIS
     Dosage: 200 MG/M2 TOTAL
     Dates: start: 201806, end: 201806
  3. CICLOSPORIN [Suspect]
     Active Substance: CYCLOSPORINE
     Indication: PROPHYLAXIS AGAINST GRAFT VERSUS HOST DISEASE
     Dosage: UNK
     Dates: start: 2018, end: 20181211
  4. METHOTREXATE. [Suspect]
     Active Substance: METHOTREXATE
     Indication: PROPHYLAXIS AGAINST GRAFT VERSUS HOST DISEASE
     Dosage: UNK
     Dates: start: 2018
  5. ANTITHYMOCYTE IMMUNOGLOBULIN [Suspect]
     Active Substance: THYMOCYTE IMMUNE GLOBULIN NOS
     Indication: PROPHYLAXIS AGAINST GRAFT VERSUS HOST DISEASE
     Dosage: 2 DOSAGES 3.5 MG/KG
     Dates: start: 2018
  6. COTRIMOXAZOLE [Concomitant]
     Active Substance: SULFAMETHOXAZOLE\TRIMETHOPRIM
     Indication: PROPHYLAXIS
     Dosage: UNK
  7. THIOTEPA. [Suspect]
     Active Substance: THIOTEPA
     Indication: ALLOGENIC STEM CELL TRANSPLANTATION
     Dosage: 2 DOSAGES 6 MG/KG TOTAL
     Dates: start: 201806, end: 201806
  8. RUXOLITINIB [Suspect]
     Active Substance: RUXOLITINIB
     Indication: MYELOFIBROSIS
     Dosage: UNK
     Dates: start: 201404, end: 201806

REACTIONS (2)
  - Venoocclusive liver disease [Recovered/Resolved]
  - Eye infection toxoplasmal [Not Recovered/Not Resolved]

NARRATIVE: CASE EVENT DATE: 2018
